FAERS Safety Report 7927504 (Version 2)
Quarter: 2014Q1

REPORT INFORMATION
  Report Type: Spontaneous
  Country: US (occurrence: US)
  Receive Date: 20110503
  Receipt Date: 20140128
  Transmission Date: 20141002
  Serious: Yes (Death, Other)
  Sender: FDA-Public Use
  Company Number: US-RANBAXY-2011US-44023

PATIENT
  Age: 57 Year
  Sex: Female

DRUGS (1)
  1. METFORMIN HYDROCHLORIDE [Suspect]
     Indication: HYPERGLYCAEMIA
     Dosage: UNK
     Route: 065

REACTIONS (5)
  - Lactic acidosis [Fatal]
  - Myocardial infarction [Unknown]
  - Toxicity to various agents [Unknown]
  - Cardiac arrest [Fatal]
  - Ventricular tachycardia [Unknown]
